FAERS Safety Report 5153328-4 (Version None)
Quarter: 2006Q4

REPORT INFORMATION
  Report Type: 
  Country: None (occurrence: None)
  Receive Date: 20061116
  Receipt Date: 20061116
  Transmission Date: 20070319
  Serious: Yes (Hospitalization)
  Sender: FDA-Public Use
  Company Number: None

PATIENT
  Sex: Male
  Weight: 84.5 kg

DRUGS (6)
  1. FERRLECIT [Suspect]
     Indication: IRON DEFICIENCY ANAEMIA
     Dosage: 250MG  ONE TIME  IV
     Route: 042
     Dates: start: 20060830
  2. TERAZOSIN HCL [Concomitant]
  3. SIMVASTATIN [Concomitant]
  4. LISINOPRIL [Concomitant]
  5. FLUNISOLIDE NASAL INHALER [Concomitant]
  6. LEVALBUTEROL HCL [Concomitant]

REACTIONS (8)
  - BLOOD PRESSURE ORTHOSTATIC ABNORMAL [None]
  - DIZZINESS [None]
  - HYPERHIDROSIS [None]
  - IRON DEFICIENCY ANAEMIA [None]
  - MICROCYTIC ANAEMIA [None]
  - NAUSEA [None]
  - PRESYNCOPE [None]
  - VOMITING [None]
